FAERS Safety Report 13013572 (Version 1)
Quarter: 2016Q4

REPORT INFORMATION
  Report Type: Spontaneous
  Country: FR (occurrence: FR)
  Receive Date: 20161209
  Receipt Date: 20161209
  Transmission Date: 20170207
  Serious: Yes (Hospitalization, Other)
  Sender: FDA-Public Use
  Company Number: FR-ELI_LILLY_AND_COMPANY-FR201611010015

PATIENT
  Age: 59 Year
  Sex: Female

DRUGS (5)
  1. INNOHEP [Concomitant]
     Active Substance: TINZAPARIN SODIUM
     Indication: SUPERIOR VENA CAVA SYNDROME
     Dosage: UNK, UNKNOWN
     Route: 058
  2. XANAX [Concomitant]
     Active Substance: ALPRAZOLAM
     Dosage: UNK, UNKNOWN
     Route: 048
  3. CISPLATINE [Suspect]
     Active Substance: CISPLATIN
     Indication: LUNG ADENOCARCINOMA METASTATIC
     Dosage: 125 MG, EVERY THREE WEEKS
     Route: 042
     Dates: start: 20150807, end: 20150812
  4. ALIMTA [Suspect]
     Active Substance: PEMETREXED DISODIUM
     Indication: LUNG ADENOCARCINOMA METASTATIC
     Dosage: 800 MG, EVERY THREE WEEKS
     Route: 042
     Dates: start: 20150807, end: 20160401
  5. PREDNISONE. [Concomitant]
     Active Substance: PREDNISONE
     Indication: SUPERIOR VENA CAVA SYNDROME
     Dosage: UNK, UNKNOWN
     Route: 048
     Dates: start: 20150713, end: 201604

REACTIONS (3)
  - Acute coronary syndrome [Unknown]
  - Arteriospasm coronary [Unknown]
  - Renal failure [Not Recovered/Not Resolved]

NARRATIVE: CASE EVENT DATE: 201512
